FAERS Safety Report 22867589 (Version 4)
Quarter: 2025Q4

REPORT INFORMATION
  Report Type: Spontaneous
  Country: US (occurrence: US)
  Receive Date: 20230825
  Receipt Date: 20251210
  Transmission Date: 20260117
  Serious: No
  Sender: TAKEDA
  Company Number: US-TAKEDA-2023TUS080929

PATIENT
  Sex: Female

DRUGS (3)
  1. VONVENDI [Suspect]
     Active Substance: VON WILLEBRAND FACTOR (RECOMBINANT)
     Indication: Product used for unknown indication
     Dosage: 4500 INTERNATIONAL UNIT, 2/WEEK
  2. VONVENDI [Suspect]
     Active Substance: VON WILLEBRAND FACTOR (RECOMBINANT)
     Dosage: UNK
  3. VONVENDI [Suspect]
     Active Substance: VON WILLEBRAND FACTOR (RECOMBINANT)
     Dosage: 4500 INTERNATIONAL UNIT, 2/WEEK

REACTIONS (6)
  - Underdose [Unknown]
  - Product reconstitution quality issue [Unknown]
  - Product residue present [Unknown]
  - Product storage error [Unknown]
  - Device malfunction [Unknown]
  - Device delivery system issue [Unknown]
